FAERS Safety Report 4642286-4 (Version None)
Quarter: 2005Q2

REPORT INFORMATION
  Report Type: 
  Country: None (occurrence: None)
  Receive Date: 20050421
  Receipt Date: 20050421
  Transmission Date: 20051028
  Serious: No
  Sender: FDA-Public Use
  Company Number: None

PATIENT
  Sex: Male
  Weight: 101.5 kg

DRUGS (4)
  1. CYTARABINE [Suspect]
     Indication: ACUTE MYELOID LEUKAEMIA
     Dates: start: 20041119
  2. DAUNOMYCIN [Suspect]
  3. MYLOTARG [Suspect]
  4. BUSULFAN [Concomitant]

REACTIONS (7)
  - ABDOMINAL PAIN [None]
  - BACTERAEMIA [None]
  - HEPATOMEGALY [None]
  - LETHARGY [None]
  - NAUSEA [None]
  - STEM CELL TRANSPLANT [None]
  - VENOOCCLUSIVE LIVER DISEASE [None]
